FAERS Safety Report 22955041 (Version 5)
Quarter: 2023Q4

REPORT INFORMATION
  Report Type: Spontaneous
  Country: CN (occurrence: None)
  Receive Date: 20230918
  Receipt Date: 20231013
  Transmission Date: 20240109
  Serious: Yes (Life-Threatening, Hospitalization, Other)
  Sender: FDA-Public Use
  Company Number: 2023A211511

PATIENT
  Age: 70 Year
  Sex: Female

DRUGS (1)
  1. SYMBICORT [Suspect]
     Active Substance: BUDESONIDE\FORMOTEROL FUMARATE DIHYDRATE
     Indication: Chronic obstructive pulmonary disease
     Dosage: 160?G/4.5?G/INHALATION, 60 INHALATIONS/PIECE.
     Route: 055

REACTIONS (9)
  - Asthma [Unknown]
  - Condition aggravated [Unknown]
  - Discomfort [Not Recovered/Not Resolved]
  - General physical health deterioration [Unknown]
  - Speech disorder [Unknown]
  - Fatigue [Unknown]
  - Breathing-related sleep disorder [Unknown]
  - Device use issue [Unknown]
  - Device ineffective [Unknown]
